FAERS Safety Report 17997097 (Version 1)
Quarter: 2020Q3

REPORT INFORMATION
  Report Type: Spontaneous
  Country: ES (occurrence: ES)
  Receive Date: 20200708
  Receipt Date: 20200708
  Transmission Date: 20201103
  Serious: Yes (Other)
  Sender: FDA-Public Use
  Company Number: ES-MYLANLABS-2020M1061805

PATIENT
  Age: 55 Year
  Sex: Male

DRUGS (10)
  1. METAMIZOL                          /06276701/ [Concomitant]
     Active Substance: METAMIZOLE
     Dosage: 2MG/5ML
  2. OMEPRAZOL                          /00661201/ [Concomitant]
     Active Substance: OMEPRAZOLE
     Dosage: UNK
  3. CEFTRIAXONA                        /00672201/ [Suspect]
     Active Substance: CEFTRIAXONE
     Indication: COVID-19 PNEUMONIA
     Dosage: 2 GRAM, QD
     Route: 042
     Dates: start: 20200327, end: 20200407
  4. PARACETAMOL [Concomitant]
     Active Substance: ACETAMINOPHEN
     Dosage: UNK
  5. DOLQUINE [Suspect]
     Active Substance: HYDROXYCHLOROQUINE SULFATE
     Indication: COVID-19 PNEUMONIA
     Dosage: 200 MILLIGRAM, BID
     Route: 048
     Dates: start: 20200326, end: 20200405
  6. METOCLOPRAMIDA                     /00041901/ [Concomitant]
     Active Substance: METOCLOPRAMIDE
     Dosage: 10MG/ 2 ML
  7. AZITHROMYCIN ANHYDROUS. [Suspect]
     Active Substance: AZITHROMYCIN ANHYDROUS
     Indication: COVID-19 PNEUMONIA
     Dosage: 500 MILLIGRAM, QD
     Dates: start: 20200327, end: 20200402
  8. CLEXANE [Concomitant]
     Active Substance: ENOXAPARIN SODIUM
     Dosage: (40 MG/ 0.4 ML)
  9. LOPINAVIR/RITONAVIR [Suspect]
     Active Substance: LOPINAVIR\RITONAVIR
     Indication: COVID-19 PNEUMONIA
     Dosage: 2 DOSAGE FORM, BID
     Route: 048
     Dates: start: 20200326, end: 20200408
  10. METILPREDNISOLONA                  /00049601/ [Suspect]
     Active Substance: METHYLPREDNISOLONE
     Indication: COVID-19 PNEUMONIA
     Dosage: DIA 1: BOLO DE 80MG, DEL 08/04 AL 16/04 EN PAUTA DESCENDENTE
     Dates: start: 20200327, end: 20200416

REACTIONS (2)
  - Retinal detachment [Unknown]
  - Off label use [Unknown]

NARRATIVE: CASE EVENT DATE: 20200622
